FAERS Safety Report 26087001 (Version 1)
Quarter: 2025Q4

REPORT INFORMATION
  Report Type: Spontaneous
  Country: EU (occurrence: EU)
  Receive Date: 20251125
  Receipt Date: 20251125
  Transmission Date: 20260117
  Serious: Yes (Hospitalization)
  Sender: RANBAXY
  Company Number: EU-AFSSAPS-BS2025000625

PATIENT
  Age: 78 Year
  Sex: Female

DRUGS (7)
  1. RAMIPRIL [Suspect]
     Active Substance: RAMIPRIL
     Indication: Wrong patient received product
     Dosage: 5 MILLIGRAM, IN TOTAL
     Route: 048
     Dates: start: 20250714, end: 20250714
  2. FLUOXETINE [Suspect]
     Active Substance: FLUOXETINE HYDROCHLORIDE
     Indication: Wrong patient received product
     Dosage: 20 MILLIGRAM, IN TOTAKL
     Route: 048
     Dates: start: 20250714, end: 20250714
  3. METFORMIN [Suspect]
     Active Substance: METFORMIN HYDROCHLORIDE
     Indication: Wrong patient received product
     Dosage: 500 MILLIGRAM, IN TOTAL
     Route: 048
     Dates: start: 20250714, end: 20250714
  4. RISPERIDONE [Suspect]
     Active Substance: RISPERIDONE
     Indication: Wrong patient received product
     Dosage: 1 MILLIGRAM, IN TOTAL
     Route: 048
     Dates: start: 20250714, end: 20250714
  5. OXAZEPAM [Suspect]
     Active Substance: OXAZEPAM
     Indication: Wrong patient received product
     Dosage: 10 MILLIGRAM, IN TOTAL
     Route: 048
     Dates: start: 20250714, end: 20250714
  6. FLECAINIDE [Suspect]
     Active Substance: FLECAINIDE
     Indication: Wrong patient received product
     Dosage: 100 MILLIGRAM, IN TOTAL
     Route: 048
     Dates: start: 20250714, end: 20250714
  7. TROPATEPINE HYDROCHLORIDE [Suspect]
     Active Substance: TROPATEPINE HYDROCHLORIDE
     Indication: Wrong patient received product
     Dosage: 10 MILLIGRAM, IN TOTAL
     Route: 048
     Dates: start: 20250714, end: 20250714

REACTIONS (3)
  - Somnolence [Recovered/Resolved]
  - Hypotension [Recovered/Resolved]
  - Wrong patient received product [Recovered/Resolved]

NARRATIVE: CASE EVENT DATE: 20250714
